FAERS Safety Report 5581836-0 (Version None)
Quarter: 2008Q1

REPORT INFORMATION
  Report Type: 
  Country: None (occurrence: None)
  Receive Date: 20080104
  Receipt Date: 20071225
  Transmission Date: 20080703
  Serious: Yes (Other)
  Sender: FDA-Public Use
  Company Number: JP-PFIZER INC-2007108223

PATIENT
  Age: 45 Year
  Sex: Female

DRUGS (1)
  1. SOLANAX [Suspect]
     Route: 048

REACTIONS (1)
  - AMNESIA [None]
